FAERS Safety Report 16844440 (Version 6)
Quarter: 2021Q1

REPORT INFORMATION
  Report Type: Spontaneous
  Country: JP (occurrence: JP)
  Receive Date: 20190924
  Receipt Date: 20210128
  Transmission Date: 20210419
  Serious: Yes (Hospitalization, Disabling, Other)
  Sender: FDA-Public Use
  Company Number: JP-GLAXOSMITHKLINE-JP2019JPN169946

PATIENT
  Age: 85 Year
  Sex: Male
  Weight: 50 kg

DRUGS (14)
  1. TAMSULOSIN HYDROCHLORIDE OD [Concomitant]
     Active Substance: TAMSULOSIN HYDROCHLORIDE
     Dosage: 0.2 MG, QD
     Route: 048
  2. SPIRONOLACTONE TABLETS [Concomitant]
     Active Substance: SPIRONOLACTONE
     Indication: BLOOD POTASSIUM DECREASED
  3. SPIRONOLACTONE TABLETS [Concomitant]
     Active Substance: SPIRONOLACTONE
     Indication: PLEURAL EFFUSION
  4. SEROQUEL [Concomitant]
     Active Substance: QUETIAPINE FUMARATE
     Dosage: 12.5 MG, QD
     Route: 048
  5. RISPERDAL FINE GRANULES [Concomitant]
     Dosage: 0.025 G, QD
     Route: 048
  6. FUROSEMIDE. [Concomitant]
     Active Substance: FUROSEMIDE
     Indication: GENERALISED OEDEMA
     Dosage: 20 MG PER DOSE, THE NUMBER OF DOSES: TWICE
     Dates: start: 20190803, end: 20190804
  7. FUROSEMIDE TABLETS [Concomitant]
     Active Substance: FUROSEMIDE
     Dosage: 20 MG, QD
     Route: 048
  8. LANSOPRAZOLE?OD TABLETS [Concomitant]
     Dosage: 30 MG, QD
     Route: 048
  9. GLUCONSAN K FINE GRANULES [Concomitant]
     Indication: BLOOD POTASSIUM DECREASED
     Dosage: UNK
  10. RIVAROXABAN [Concomitant]
     Active Substance: RIVAROXABAN
     Indication: ATRIAL FIBRILLATION
     Dosage: 10 MG, QD
     Route: 048
     Dates: start: 20190806, end: 20190827
  11. MAGMITT TABLET [Concomitant]
     Dosage: 330 MG, BID
     Route: 048
  12. OLMESARTAN OD TABLETS [Concomitant]
     Dosage: 10 MG, QD
     Route: 048
  13. SPIRONOLACTONE TABLETS [Concomitant]
     Active Substance: SPIRONOLACTONE
     Indication: OEDEMA
     Dosage: 25 MG, QD
     Route: 048
     Dates: start: 20190806, end: 20190827
  14. AVOLVE [Suspect]
     Active Substance: DUTASTERIDE
     Indication: BENIGN PROSTATIC HYPERPLASIA
     Dosage: 0.5 MG, QD, IN THE MORNING
     Route: 048
     Dates: end: 20190827

REACTIONS (9)
  - Hypoalbuminaemia [Unknown]
  - Somnolence [Unknown]
  - Dysphagia [Unknown]
  - Pleural effusion [Unknown]
  - Subdural haematoma [Unknown]
  - Generalised oedema [Unknown]
  - Fall [Unknown]
  - Depressed level of consciousness [Unknown]
  - Head injury [Unknown]

NARRATIVE: CASE EVENT DATE: 201907
